FAERS Safety Report 13703091 (Version 2)
Quarter: 2018Q2

REPORT INFORMATION
  Report Type: Spontaneous
  Country: FR (occurrence: FR)
  Receive Date: 20170629
  Receipt Date: 20180503
  Transmission Date: 20180711
  Serious: Yes (Hospitalization)
  Sender: FDA-Public Use
  Company Number: FR-ASTRAZENECA-2017SE65743

PATIENT
  Age: 26814 Day
  Sex: Female

DRUGS (10)
  1. LAROXYL [Concomitant]
     Active Substance: AMITRIPTYLINE HYDROCHLORIDE
     Dosage: 12 DROPS IN THE EVENING
  2. IBRANCE [Suspect]
     Active Substance: PALBOCICLIB
     Indication: BREAST CANCER FEMALE
     Dosage: 125 MG/DAY 21/28 DAYS
     Route: 048
     Dates: start: 20170414, end: 20170530
  3. PARACETAMOL [Concomitant]
     Active Substance: ACETAMINOPHEN
  4. FASLODEX [Suspect]
     Active Substance: FULVESTRANT
     Indication: NEOPLASM MALIGNANT
     Route: 030
     Dates: start: 20170414, end: 20170526
  5. XANAX [Concomitant]
     Active Substance: ALPRAZOLAM
     Dosage: 1 TABLET IN THE EVENING
  6. LEVOTHYROX [Concomitant]
     Active Substance: LEVOTHYROXINE
     Dosage: 1 TABLET/DAY
  7. LOXEN  LP [Concomitant]
     Active Substance: NICARDIPINE HYDROCHLORIDE
     Dosage: 1 CAPSULE X2/DAY
  8. DEROXAT [Concomitant]
     Active Substance: PAROXETINE HYDROCHLORIDE
     Dosage: 1 TABLET/DAY
  9. SMECTA [Concomitant]
     Active Substance: MONTMORILLONITE
     Dosage: 1 PACK X3/DAY
  10. IMODIUM [Concomitant]
     Active Substance: LOPERAMIDE HYDROCHLORIDE
     Indication: DIARRHOEA
     Dosage: 1 CAPSULE IF DIARRHEA

REACTIONS (3)
  - Lymphopenia [Recovering/Resolving]
  - Interstitial lung disease [Recovering/Resolving]
  - Pneumocystis jirovecii pneumonia [Recovering/Resolving]

NARRATIVE: CASE EVENT DATE: 20170602
